FAERS Safety Report 6341142-3 (Version None)
Quarter: 2009Q3

REPORT INFORMATION
  Report Type: 
  Country: None (occurrence: None)
  Receive Date: 20090904
  Receipt Date: 20090208
  Transmission Date: 20100115
  Serious: Yes (Other)
  Sender: FDA-Public Use
  Company Number: A0768312A

PATIENT
  Age: 69 Year
  Sex: Male

DRUGS (2)
  1. REQUIP [Suspect]
     Indication: PARKINSON'S DISEASE
  2. COQ10 [Suspect]
     Indication: PARKINSON'S DISEASE

REACTIONS (1)
  - PARKINSON'S DISEASE [None]
